FAERS Safety Report 8923494 (Version 1)
Quarter: 2012Q4

REPORT INFORMATION
  Report Type: 
  Country: FR (occurrence: FR)
  Receive Date: 20121123
  Receipt Date: 20121123
  Transmission Date: 20130627
  Serious: Yes (Hospitalization)
  Sender: FDA-Public Use
  Company Number: FR-PFIZER INC-2012290505

PATIENT
  Age: 88 Year
  Sex: Female

DRUGS (10)
  1. ALDACTONE [Suspect]
     Dosage: 25 mg, 1x/day
     Route: 048
     Dates: end: 20121019
  2. RAMIPRIL [Suspect]
     Dosage: 5 mg, 1x/day
     Route: 048
     Dates: end: 20121019
  3. DIFFU K [Suspect]
     Dosage: 600 mg, 1x/day
     Route: 048
     Dates: end: 20121019
  4. FUROSEMIDE [Concomitant]
     Dosage: 40 mg, 1x/day
     Route: 048
     Dates: end: 20121019
  5. PRAVASTATIN [Concomitant]
     Dosage: 20 mg, 1x/day
     Route: 048
     Dates: end: 20121025
  6. MOPRAL [Concomitant]
     Dosage: 10 mg, 1x/day
     Route: 048
  7. STILNOX [Concomitant]
     Dosage: 10 mg, 1x/day
     Dates: end: 20121019
  8. DIGOXIN [Concomitant]
     Dosage: 0.125 mg, 1x/day
     Route: 048
     Dates: end: 20121019
  9. NITRIDERM TTS [Concomitant]
     Dosage: 1 DF, 1x/day
     Route: 062
  10. PREVISCAN [Concomitant]
     Dosage: 20 mg, 1x/day
     Route: 048

REACTIONS (2)
  - Hyperkalaemia [Recovered/Resolved]
  - Cardiac failure chronic [Unknown]
